FAERS Safety Report 6336814-0 (Version None)
Quarter: 2009Q3

REPORT INFORMATION
  Report Type: 
  Country: None (occurrence: None)
  Receive Date: 20090831
  Receipt Date: 20090831
  Transmission Date: 20100115
  Serious: Yes (Other)
  Sender: FDA-Public Use
  Company Number: None

PATIENT
  Age: 49 Year
  Sex: Female
  Weight: 79.3795 kg

DRUGS (2)
  1. CYMBALTA [Suspect]
     Indication: BIPOLAR DISORDER
     Dosage: 60MG 1/DAY PO
     Route: 048
     Dates: start: 20080915, end: 20090821
  2. CYMBALTA [Suspect]
     Indication: DEPRESSION
     Dosage: 60MG 1/DAY PO
     Route: 048
     Dates: start: 20080915, end: 20090821

REACTIONS (7)
  - DRUG WITHDRAWAL SYNDROME [None]
  - FATIGUE [None]
  - FEELING ABNORMAL [None]
  - HYPERHIDROSIS [None]
  - NAUSEA [None]
  - PAIN [None]
  - PARAESTHESIA [None]
